FAERS Safety Report 11422320 (Version 6)
Quarter: 2016Q1

REPORT INFORMATION
  Report Type: Report from Study
  Country: US (occurrence: US)
  Receive Date: 20150827
  Receipt Date: 20160215
  Transmission Date: 20160525
  Serious: Yes (Other)
  Sender: FDA-Public Use
  Company Number: US-AMGEN-USASL2015086276

PATIENT
  Age: 39 Year
  Sex: Female

DRUGS (2)
  1. ENBREL [Suspect]
     Active Substance: ETANERCEPT
     Indication: PSORIASIS
     Dosage: 50 MG, 2 TIMES/WK
     Route: 065
     Dates: start: 20150806, end: 2015
  2. ENBREL [Suspect]
     Active Substance: ETANERCEPT
     Dosage: 50 MG, QWK
     Route: 065
     Dates: start: 2015, end: 201510

REACTIONS (9)
  - Lip dry [Unknown]
  - Skin exfoliation [Unknown]
  - Oropharyngeal pain [Unknown]
  - Dry skin [Unknown]
  - Therapeutic response decreased [Unknown]
  - Throat irritation [Unknown]
  - Mycobacterium tuberculosis complex test positive [Unknown]
  - Injection site pain [Unknown]
  - Skin induration [Unknown]

NARRATIVE: CASE EVENT DATE: 2015
